FAERS Safety Report 7645318-4 (Version None)
Quarter: 2011Q3

REPORT INFORMATION
  Report Type: 
  Country: None (occurrence: None)
  Receive Date: 20110729
  Receipt Date: 20110720
  Transmission Date: 20111222
  Serious: Yes (Other)
  Sender: FDA-Public Use
  Company Number: CH-ASTRAZENECA-2011SE44030

PATIENT
  Age: 40 Year
  Sex: Male

DRUGS (13)
  1. OXANDROLONE [Suspect]
     Dates: start: 20110404, end: 20110522
  2. TESTOSTERONE PHENYL PROPIONATE INJ [Suspect]
     Dates: start: 20110110, end: 20110215
  3. TRENBOLONE [Suspect]
     Dates: start: 20110328, end: 20110515
  4. BOLDENON [Suspect]
     Dates: start: 20110110, end: 20110215
  5. CLENBUTEROL [Suspect]
     Dosage: 2 TO 6 DF DAILY
     Route: 048
     Dates: start: 20110131, end: 20110214
  6. TESTOSTERONE CYPIONATE [Suspect]
     Dates: start: 20110214, end: 20110328
  7. PRIMOBOLAN [Suspect]
     Dates: start: 20110214, end: 20110328
  8. SOMATROPIN [Suspect]
     Dates: start: 20110322, end: 20110515
  9. TESTOSTERONE [Suspect]
     Dates: start: 20110328, end: 20110515
  10. WINSTROL [Suspect]
     Dates: start: 20110404, end: 20110522
  11. ARIMIDEX [Suspect]
     Route: 048
     Dates: start: 20110110, end: 20110515
  12. SOMATROPIN [Suspect]
     Dates: start: 20110131, end: 20110321
  13. PROVIRON [Suspect]
     Dates: start: 20110404, end: 20110522

REACTIONS (8)
  - SNORING [None]
  - DYSPHONIA [None]
  - AZOTAEMIA [None]
  - HYPOCHOLESTEROLAEMIA [None]
  - LIVER INJURY [None]
  - ACROMEGALY [None]
  - RHABDOMYOLYSIS [None]
  - MUSCLE HYPERTROPHY [None]
